FAERS Safety Report 4677757-8 (Version None)
Quarter: 2005Q2

REPORT INFORMATION
  Report Type: 
  Country: None (occurrence: None)
  Receive Date: 20050527
  Receipt Date: 20050511
  Transmission Date: 20051028
  Serious: Yes (Hospitalization)
  Sender: FDA-Public Use
  Company Number: 106600ISR

PATIENT
  Age: 49 Year
  Sex: Female

DRUGS (1)
  1. GLATIRAMER ACETATE [Suspect]
     Dosage: 20 MILLIGRAM
     Route: 058
     Dates: start: 20030926

REACTIONS (4)
  - COORDINATION ABNORMAL [None]
  - EXTENSOR PLANTAR RESPONSE [None]
  - HYPOAESTHESIA [None]
  - TREMOR [None]
